FAERS Safety Report 8082023-7 (Version None)
Quarter: 2012Q1

REPORT INFORMATION
  Report Type: 
  Country: None (occurrence: None)
  Receive Date: 20120130
  Receipt Date: 20120120
  Transmission Date: 20120608
  Serious: Yes (Hospitalization)
  Sender: FDA-Public Use
  Company Number: PHHY2012US005281

PATIENT
  Age: 18 Year
  Sex: Female

DRUGS (5)
  1. DROSPIRENONE AND ETHINYL ESTRADIOL [Suspect]
     Indication: HORMONE THERAPY
     Route: 048
  2. SERTRALINE HYDROCHLORIDE [Concomitant]
     Indication: DEPRESSION
     Dosage: 50 MG, QD
     Route: 048
  3. INDOMETHACIN [Concomitant]
     Indication: PAIN
     Dosage: 25 MG, UNK
     Route: 048
  4. LANSOPRAZOLE [Concomitant]
     Indication: GASTROOESOPHAGEAL REFLUX DISEASE
     Dosage: 30 MG, QD
  5. PANTOPRAZOLE [Concomitant]
     Dosage: 40 MG, QD
     Route: 042

REACTIONS (9)
  - COLITIS ISCHAEMIC [None]
  - NAUSEA [None]
  - GASTRIC MUCOSA ERYTHEMA [None]
  - SIGMOIDITIS [None]
  - COLITIS EROSIVE [None]
  - ABDOMINAL TENDERNESS [None]
  - HAEMATOCHEZIA [None]
  - LARGE INTESTINAL ULCER [None]
  - ABDOMINAL PAIN [None]
